FAERS Safety Report 24019210 (Version 1)
Quarter: 2024Q2

REPORT INFORMATION
  Report Type: Spontaneous
  Country: US (occurrence: None)
  Receive Date: 20240626
  Receipt Date: 20240626
  Transmission Date: 20240716
  Serious: Yes (Hospitalization)
  Sender: FDA-Public Use
  Company Number: None

PATIENT
  Age: 58 Year
  Sex: Female
  Weight: 90 kg

DRUGS (9)
  1. MOUNJARO [Suspect]
     Active Substance: TIRZEPATIDE
     Indication: Type 2 diabetes mellitus
     Dosage: OTHER QUANTITY : 1 INJECTION(S);?OTHER FREQUENCY : ONCE A WEEK;?
     Route: 058
     Dates: start: 20240102
  2. REPATHA [Concomitant]
     Active Substance: EVOLOCUMAB
  3. METEPROPOLO [Concomitant]
  4. GABAPENTIN [Concomitant]
     Active Substance: GABAPENTIN
  5. CLARITIN [Concomitant]
     Active Substance: LORATADINE
  6. PANTOPRAZOLE [Concomitant]
     Active Substance: PANTOPRAZOLE
  7. INSULIN IN INSULIN PUMP [Concomitant]
  8. BIOTIN [Concomitant]
     Active Substance: BIOTIN
  9. TARODOL FIBER [Concomitant]

REACTIONS (4)
  - Feeling abnormal [None]
  - Vomiting [None]
  - Diarrhoea [None]
  - Abdominal pain upper [None]

NARRATIVE: CASE EVENT DATE: 20240622
